FAERS Safety Report 4551237-2 (Version None)
Quarter: 2005Q1

REPORT INFORMATION
  Report Type: 
  Country: None (occurrence: None)
  Receive Date: 20050110
  Receipt Date: 20040903
  Transmission Date: 20050727
  Serious: Yes (Death, Hospitalization)
  Sender: FDA-Public Use
  Company Number: 1999003372-FJ

PATIENT
  Age: 14 Year
  Sex: Male
  Weight: 30.5 kg

DRUGS (14)
  1. TACROLIMUS INJECTION (TACROLIMUS INJECTION) INJECTION [Suspect]
     Indication: RENAL TRANSPLANT
     Dosage: SEE IMAGE
     Route: 042
     Dates: start: 19980309, end: 19980319
  2. TACROLIMUS INJECTION (TACROLIMUS INJECTION) INJECTION [Suspect]
     Indication: RENAL TRANSPLANT
     Dosage: SEE IMAGE
     Route: 042
     Dates: start: 19980316, end: 19980717
  3. TACROLIMUS INJECTION (TACROLIMUS INJECTION) INJECTION [Suspect]
     Indication: RENAL TRANSPLANT
     Dosage: SEE IMAGE
     Route: 042
     Dates: start: 19980718, end: 19980720
  4. TACROLIMUS INJECTION (TACROLIMUS INJECTION) INJECTION [Suspect]
     Indication: RENAL TRANSPLANT
     Dosage: SEE IMAGE
     Route: 042
     Dates: start: 19980721, end: 19980831
  5. TACROLIMUS INJECTION (TACROLIMUS INJECTION) INJECTION [Suspect]
     Indication: RENAL TRANSPLANT
     Dosage: SEE IMAGE
     Route: 042
     Dates: start: 19980901, end: 19980901
  6. METHYLPREDNISOLONE [Concomitant]
  7. MIZORIBINE [Concomitant]
  8. PREDNISOLONE [Concomitant]
  9. ANTILYMPHOCYTE IMMUNOGOLBULI [Concomitant]
  10. NIFEDIPINE [Concomitant]
  11. LABETALOL HYDROCHLORIDE [Concomitant]
  12. ACYCLOVIR [Concomitant]
  13. MAGNESIUM SULFATE/GLUCOSE [Concomitant]
  14. AMLODIPINE BESYLATE [Concomitant]

REACTIONS (4)
  - ABDOMINAL PAIN [None]
  - PNEUMONIA ASPERGILLUS [None]
  - PNEUMONIA PNEUMOCOCCAL [None]
  - RESPIRATORY FAILURE [None]
